FAERS Safety Report 16031514 (Version 1)
Quarter: 2019Q1

REPORT INFORMATION
  Report Type: Spontaneous
  Country: DE (occurrence: DE)
  Receive Date: 20190304
  Receipt Date: 20190304
  Transmission Date: 20190418
  Serious: Yes (Other)
  Sender: FDA-Public Use
  Company Number: DE-CELGENEUS-DEU-20190208143

PATIENT
  Age: 68 Year
  Sex: Male
  Weight: 84 kg

DRUGS (1)
  1. OTEZLA [Suspect]
     Active Substance: APREMILAST
     Indication: PSORIATIC ARTHROPATHY
     Route: 048
     Dates: start: 201708, end: 201804

REACTIONS (5)
  - Gastrointestinal disorder [Unknown]
  - Suicide attempt [Unknown]
  - Nightmare [Unknown]
  - Psoriatic arthropathy [Recovering/Resolving]
  - Depression [Unknown]
